FAERS Safety Report 8990768 (Version 1)
Quarter: 2012Q4

REPORT INFORMATION
  Report Type: Spontaneous
  Country: US (occurrence: None)
  Receive Date: 20121226
  Receipt Date: 20121226
  Transmission Date: 20130627
  Serious: Yes (Hospitalization)
  Sender: FDA-Public Use
  Company Number: None

PATIENT
  Sex: Female

DRUGS (1)
  1. GLEEVEC [Suspect]
     Indication: CANCER
     Dosage: 100 mg, taken 2 ever day daily oral
     Route: 048
     Dates: start: 2008, end: 201211

REACTIONS (2)
  - Orbital oedema [None]
  - Myocardial infarction [None]
